FAERS Safety Report 8487877-8 (Version None)
Quarter: 2012Q2

REPORT INFORMATION
  Report Type: 
  Country: None (occurrence: None)
  Receive Date: 20120627
  Receipt Date: 20120612
  Transmission Date: 20120825
  Serious: Yes (Hospitalization, Other)
  Sender: FDA-Public Use
  Company Number: CIP11001932

PATIENT
  Age: 53 Year
  Sex: Female

DRUGS (8)
  1. CRESTOR [Concomitant]
  2. CALCIUM CARBONATE [Concomitant]
  3. FOSAMAX [Suspect]
     Indication: OSTEOPOROSIS
     Dosage: 70 MG, ORAL
     Route: 048
     Dates: start: 20070901, end: 20080101
  4. ALENDRONATE SODIUM [Suspect]
     Indication: OSTEOPOROSIS
     Dosage: 70 MG, ORAL
     Route: 048
     Dates: start: 20080201, end: 20090622
  5. ALENDRONATE SODIUM [Suspect]
     Indication: OSTEOPOROSIS
     Dosage: 70 MG, ORAL
     Route: 048
     Dates: start: 20090727, end: 20101020
  6. LEVOTHYROXINE SODIUM [Concomitant]
  7. ACTONEL [Suspect]
     Dosage: 35 MG, ORAL
     Route: 048
     Dates: start: 20061001, end: 20070701
  8. FOSAMAX PLUS D [Suspect]
     Indication: OSTEOPOROSIS
     Dosage: DOSAGE / REGMIN, ORAL
     Route: 048

REACTIONS (16)
  - PAIN IN EXTREMITY [None]
  - DEVICE FAILURE [None]
  - BONE PAIN [None]
  - LOW TURNOVER OSTEOPATHY [None]
  - PATHOLOGICAL FRACTURE [None]
  - GROIN PAIN [None]
  - GAIT DISTURBANCE [None]
  - OEDEMA PERIPHERAL [None]
  - ANTIBIOTIC RESISTANT STAPHYLOCOCCUS TEST POSITIVE [None]
  - TOXICITY TO VARIOUS AGENTS [None]
  - FALL [None]
  - FEMUR FRACTURE [None]
  - FRACTURE NONUNION [None]
  - PAIN [None]
  - LIMB DISCOMFORT [None]
  - SKELETAL INJURY [None]
